FAERS Safety Report 15483321 (Version 1)
Quarter: 2018Q4

REPORT INFORMATION
  Report Type: Spontaneous
  Country: US (occurrence: US)
  Receive Date: 20181003
  Receipt Date: 20181003
  Transmission Date: 20190205
  Serious: Yes (Life-Threatening, Hospitalization)
  Sender: FDA-Public Use
  Company Number: None

PATIENT
  Age: 70 Year
  Sex: Female
  Weight: 68.04 kg

DRUGS (12)
  1. ACETAMINOPHEN. [Concomitant]
     Active Substance: ACETAMINOPHEN
  2. PROPRANOLOL [Concomitant]
     Active Substance: PROPRANOLOL HYDROCHLORIDE
  3. TAMBOCOR [Suspect]
     Active Substance: FLECAINIDE ACETATE
     Indication: ATRIAL FIBRILLATION
     Dosage: ?          QUANTITY:1 PILL;?
     Route: 048
     Dates: start: 20170526, end: 20170528
  4. POTASSIUM CHLORIDE. [Concomitant]
     Active Substance: POTASSIUM CHLORIDE
  5. GLUCOSAMINE [Concomitant]
     Active Substance: GLUCOSAMINE
  6. LISINOPRIL. [Concomitant]
     Active Substance: LISINOPRIL
  7. MULTIVITAMIN [Concomitant]
     Active Substance: VITAMINS
  8. AMLODIPINE [Concomitant]
     Active Substance: AMLODIPINE BESYLATE
  9. METOPROLOL. [Concomitant]
     Active Substance: METOPROLOL
  10. DULOXETINE. [Concomitant]
     Active Substance: DULOXETINE
  11. PROBIOTIC [Concomitant]
     Active Substance: PROBIOTICS NOS
  12. AMLODIPINE [Concomitant]
     Active Substance: AMLODIPINE BESYLATE

REACTIONS (2)
  - Loss of consciousness [None]
  - Pulmonary sepsis [None]

NARRATIVE: CASE EVENT DATE: 20170528
